FAERS Safety Report 6428857-3 (Version None)
Quarter: 2009Q4

REPORT INFORMATION
  Report Type: 
  Country: None (occurrence: None)
  Receive Date: 20091104
  Receipt Date: 20091104
  Transmission Date: 20100525
  Serious: Yes (Hospitalization)
  Sender: FDA-Public Use
  Company Number: None

PATIENT
  Age: 69 Year
  Sex: Male

DRUGS (1)
  1. CAPTOPRIL [Suspect]
     Indication: HYPERTENSION
     Dosage: 100 MG BID PO
     Route: 048
     Dates: start: 20080610, end: 20090108

REACTIONS (1)
  - ANGIOEDEMA [None]
